FAERS Safety Report 8747553 (Version 6)
Quarter: 2012Q4

REPORT INFORMATION
  Report Type: 
  Country: GB (occurrence: GB)
  Receive Date: 20120827
  Receipt Date: 20121015
  Transmission Date: 20130627
  Serious: Yes (Other)
  Sender: FDA-Public Use
  Company Number: GB-PFIZER INC-2012203037

PATIENT
  Age: 61 Year
  Sex: Female
  Weight: 78.46 kg

DRUGS (6)
  1. ATORVASTATIN [Suspect]
     Dosage: UNK
     Route: 048
     Dates: start: 20120710, end: 20120731
  2. AMLODIPINE BESILATE [Suspect]
     Dosage: UNK
     Route: 065
  3. PERINDOPRIL [Suspect]
     Dosage: UNK
     Route: 065
  4. ASPIRIN [Suspect]
     Dosage: 75 mg, UNK
     Route: 065
  5. DIPYRIDAMOLE [Suspect]
     Dosage: UNK
     Route: 065
  6. ZOCOR [Suspect]
     Dosage: UNK
     Route: 048
     Dates: start: 20120310

REACTIONS (5)
  - Abdominal pain [Unknown]
  - Renal disorder [Recovered/Resolved]
  - Myalgia [Unknown]
  - Quality of life decreased [Unknown]
  - Liver injury [Unknown]
